FAERS Safety Report 8877474 (Version 1)
Quarter: 2012Q4

REPORT INFORMATION
  Report Type: Spontaneous
  Country: US (occurrence: None)
  Receive Date: 20121026
  Receipt Date: 20121026
  Transmission Date: 20130627
  Serious: Yes (Hospitalization)
  Sender: FDA-Public Use
  Company Number: None

PATIENT
  Age: 69 Year
  Sex: Female
  Weight: 54.7 kg

DRUGS (1)
  1. VOTRIENT [Suspect]
     Indication: THYROID CANCER
     Route: 048
     Dates: start: 20120815, end: 20120829

REACTIONS (4)
  - Pain [None]
  - Confusional state [None]
  - Grand mal convulsion [None]
  - Posterior reversible encephalopathy syndrome [None]
